FAERS Safety Report 21294562 (Version 1)
Quarter: 2022Q3

REPORT INFORMATION
  Report Type: Report from Study
  Country: US (occurrence: US)
  Receive Date: 20220905
  Receipt Date: 20220905
  Transmission Date: 20221026
  Serious: Yes (Hospitalization)
  Sender: FDA-Public Use
  Company Number: US-TEVA-2022-US-2069188

PATIENT
  Age: 71 Year
  Sex: Male
  Weight: 82 kg

DRUGS (4)
  1. LISINOPRIL [Suspect]
     Active Substance: LISINOPRIL
     Indication: Hypertension
     Dosage: 40 MILLIGRAM DAILY;
     Route: 048
     Dates: start: 1986, end: 20220710
  2. GLIPIZIDE [Concomitant]
     Active Substance: GLIPIZIDE
     Indication: Product used for unknown indication
     Dates: start: 1986, end: 20220711
  3. AMLODIPINE [Concomitant]
     Active Substance: AMLODIPINE BESYLATE
     Indication: Product used for unknown indication
     Dates: start: 1986
  4. HYDROCHLOROTHIAZIDE [Concomitant]
     Active Substance: HYDROCHLOROTHIAZIDE
     Indication: Product used for unknown indication
     Dates: start: 1986, end: 20220711

REACTIONS (5)
  - Angioedema [Recovered/Resolved]
  - Oropharyngeal pain [Unknown]
  - Dysphagia [Unknown]
  - Speech disorder [Unknown]
  - Swollen tongue [Unknown]

NARRATIVE: CASE EVENT DATE: 20220710
